FAERS Safety Report 10184194 (Version 2)
Quarter: 2014Q2

REPORT INFORMATION
  Report Type: Spontaneous
  Country: US (occurrence: US)
  Receive Date: 20140520
  Receipt Date: 20140528
  Transmission Date: 20141212
  Serious: No
  Sender: FDA-Public Use
  Company Number: US-009507513-1405USA007753

PATIENT
  Age: 45 Year
  Sex: Male

DRUGS (1)
  1. PROVENTIL [Suspect]
     Indication: ASTHMA
     Dosage: 2 DF, PRN, EVERY 4 TO 6 HOURS
     Route: 055
     Dates: start: 2008

REACTIONS (3)
  - Wheezing [Unknown]
  - Drug dose omission [Unknown]
  - Product quality issue [Unknown]
